FAERS Safety Report 11736778 (Version 1)
Quarter: 2015Q4

REPORT INFORMATION
  Report Type: Spontaneous
  Country: US (occurrence: US)
  Receive Date: 20151113
  Receipt Date: 20151113
  Transmission Date: 20160304
  Serious: No
  Sender: FDA-Public Use
  Company Number: US-JNJFOC-20151023818

PATIENT
  Sex: Male

DRUGS (2)
  1. IMODIUM AD [Suspect]
     Active Substance: LOPERAMIDE HYDROCHLORIDE
     Route: 048
  2. IMODIUM AD [Suspect]
     Active Substance: LOPERAMIDE HYDROCHLORIDE
     Indication: GASTRIC DISORDER
     Route: 048

REACTIONS (3)
  - Product use issue [None]
  - Adverse event [Unknown]
  - Off label use [None]
